FAERS Safety Report 16870050 (Version 1)
Quarter: 2019Q3

REPORT INFORMATION
  Report Type: Spontaneous
  Country: CH (occurrence: CH)
  Receive Date: 20190930
  Receipt Date: 20190930
  Transmission Date: 20191005
  Serious: Yes (Hospitalization, Disabling)
  Sender: FDA-Public Use
  Company Number: CH-FRESENIUS KABI-FK201910730

PATIENT
  Age: 75 Year
  Sex: Female

DRUGS (2)
  1. MORPHINE (MANUFACTURER UNKNOWN) [Suspect]
     Active Substance: MORPHINE
     Indication: ANALGESIC THERAPY
     Route: 037
     Dates: start: 2012, end: 201804
  2. CLONIDINE HYDROCHLORIDE INJECTION (MANUFACTURER UNKNOWN) [Suspect]
     Active Substance: CLONIDINE HYDROCHLORIDE
     Indication: ANALGESIC THERAPY
     Route: 037
     Dates: start: 2012, end: 201804

REACTIONS (2)
  - Myelomalacia [Recovered/Resolved with Sequelae]
  - Catheter site granuloma [Recovered/Resolved with Sequelae]
